FAERS Safety Report 15567309 (Version 1)
Quarter: 2018Q4

REPORT INFORMATION
  Report Type: Other
  Country: ES (occurrence: ES)
  Receive Date: 20181030
  Receipt Date: 20181030
  Transmission Date: 20190205
  Serious: Yes (Other)
  Sender: FDA-Public Use
  Company Number: ES-PROVELL PHARMACEUTICALS-2058228

PATIENT
  Sex: Male

DRUGS (7)
  1. DINOPROSTONE. [Suspect]
     Active Substance: DINOPROSTONE
  2. RANITIDINE. [Suspect]
     Active Substance: RANITIDINE
  3. EUTHYROX [Suspect]
     Active Substance: LEVOTHYROXINE SODIUM
     Indication: HYPOTHYROIDISM
  4. OXYTOCIN. [Suspect]
     Active Substance: OXYTOCIN
  5. OXYGEN. [Suspect]
     Active Substance: OXYGEN
  6. BEMIPARIN [Suspect]
     Active Substance: BEMIPARIN
  7. REMIFENTANIL [Suspect]
     Active Substance: REMIFENTANIL

REACTIONS (3)
  - Foetal exposure during pregnancy [Unknown]
  - Underweight [Unknown]
  - Shoulder dystocia [Unknown]
